FAERS Safety Report 18688483 (Version 1)
Quarter: 2020Q4

REPORT INFORMATION
  Report Type: Spontaneous
  Country: CN (occurrence: CN)
  Receive Date: 20201231
  Receipt Date: 20201231
  Transmission Date: 20210114
  Serious: Yes (Other)
  Sender: FDA-Public Use
  Company Number: CN-LUPIN PHARMACEUTICALS INC.-2020-11159

PATIENT
  Age: 82 Year
  Sex: Female

DRUGS (6)
  1. METHYLPREDNISOLONE. [Suspect]
     Active Substance: METHYLPREDNISOLONE
     Indication: COVID-19 PNEUMONIA
     Dosage: 40 MILLIGRAM, BID
     Route: 065
  2. UMIFENOVIR. [Suspect]
     Active Substance: UMIFENOVIR
     Indication: COVID-19 PNEUMONIA
     Dosage: 0.2 GRAM, TID
     Route: 048
  3. INTERFERON ALFA NOS [Concomitant]
     Active Substance: INTERFERON ALFA-2A OR INTERFERON ALFA-2B
     Indication: PRODUCT USED FOR UNKNOWN INDICATION
     Dosage: UNK UNK, BID (500X10^6 U)
     Route: 065
  4. HUMAN IMMUNOGLOBULIN (IMMUNOGLOBULIN HUMAN NORMAL) [Suspect]
     Active Substance: HUMAN IMMUNOGLOBULIN G
     Indication: COVID-19 PNEUMONIA
     Dosage: 10 GRAM, QD
     Route: 065
  5. LOPINAVIR/RITONAVIR [Suspect]
     Active Substance: LOPINAVIR\RITONAVIR
     Indication: COVID-19 PNEUMONIA
     Dosage: UNK
     Route: 048
  6. ESOMEPRAZOLE. [Concomitant]
     Active Substance: ESOMEPRAZOLE MAGNESIUM
     Indication: PRODUCT USED FOR UNKNOWN INDICATION
     Dosage: 40 MILLIGRAM, BID
     Route: 065

REACTIONS (1)
  - Off label use [Unknown]
